FAERS Safety Report 7723540-6 (Version None)
Quarter: 2011Q3

REPORT INFORMATION
  Report Type: 
  Country: None (occurrence: None)
  Receive Date: 20110901
  Receipt Date: 20110830
  Transmission Date: 20111222
  Serious: Yes (Death, Hospitalization, Other)
  Sender: FDA-Public Use
  Company Number: PHEH2009US18888

PATIENT
  Sex: Female
  Weight: 68.027 kg

DRUGS (3)
  1. EXJADE [Suspect]
     Indication: IRON OVERLOAD
     Dosage: 50 MG, DAILY
     Route: 048
     Dates: start: 20080111
  2. LISINOPRIL [Concomitant]
     Dosage: UNK UKN, UNK
  3. COUMADIN [Concomitant]
     Dosage: UNK UKN, UNK

REACTIONS (21)
  - RENAL FAILURE ACUTE [None]
  - VOMITING [None]
  - COLITIS [None]
  - LETHARGY [None]
  - ASCITES [None]
  - CHOLELITHIASIS [None]
  - DEHYDRATION [None]
  - OLIGURIA [None]
  - INTERNATIONAL NORMALISED RATIO INCREASED [None]
  - AZOTAEMIA [None]
  - MENTAL DISORDER [None]
  - METABOLIC ENCEPHALOPATHY [None]
  - HYPOGLYCAEMIA [None]
  - DIARRHOEA [None]
  - ILEUS PARALYTIC [None]
  - ABDOMINAL PAIN [None]
  - BLOOD CREATININE INCREASED [None]
  - ATROPHY [None]
  - SPLENOMEGALY [None]
  - RENAL TUBULAR NECROSIS [None]
  - WHITE BLOOD CELL COUNT INCREASED [None]
